FAERS Safety Report 10053024 (Version 1)
Quarter: 2014Q2

REPORT INFORMATION
  Report Type: Spontaneous
  Country: US (occurrence: US)
  Receive Date: 20140402
  Receipt Date: 20140402
  Transmission Date: 20141212
  Serious: Yes (Other)
  Sender: FDA-Public Use
  Company Number: US-BAYER-2014-049140

PATIENT
  Age: 41 Year
  Sex: Female

DRUGS (5)
  1. YAZ [Suspect]
     Indication: ENDOMETRIOSIS
  2. YASMIN [Suspect]
     Indication: ENDOMETRIOSIS
  3. SINGULAIR [Concomitant]
     Dosage: 10 MG, 1 DAY
     Route: 048
  4. PANTOPRAZOLE [Concomitant]
     Dosage: 40 MG, 1 D
     Route: 048
  5. MECLIZINE [Concomitant]
     Dosage: 25 MG, QID
     Route: 048

REACTIONS (2)
  - Deep vein thrombosis [None]
  - Deep vein thrombosis [None]
